FAERS Safety Report 14614998 (Version 2)
Quarter: 2018Q2

REPORT INFORMATION
  Report Type: Spontaneous
  Country: US (occurrence: US)
  Receive Date: 20180308
  Receipt Date: 20180613
  Transmission Date: 20180711
  Serious: Yes (Hospitalization, Other)
  Sender: FDA-Public Use
  Company Number: US-ALLERGAN-1811557US

PATIENT
  Age: 72 Year
  Sex: Female

DRUGS (3)
  1. ACETAMINOPHEN AND CODEINE [Suspect]
     Active Substance: ACETAMINOPHEN\CODEINE PHOSPHATE
     Indication: BACK PAIN
     Dosage: UNK, QD
     Route: 065
  2. ACETAMINOPHEN. [Suspect]
     Active Substance: ACETAMINOPHEN
     Indication: BACK PAIN
     Dosage: UNK, QD
     Route: 065
  3. HYDROCODONE BITARTRATE;ACETAMINOPHEN UNK [Suspect]
     Active Substance: ACETAMINOPHEN\HYDROCODONE BITARTRATE
     Indication: BACK PAIN
     Dosage: UNK, QD
     Route: 065

REACTIONS (8)
  - Drug dose omission [Unknown]
  - Blood bicarbonate abnormal [Recovered/Resolved]
  - Metabolic acidosis [Recovering/Resolving]
  - Somnolence [Unknown]
  - Intentional product misuse [Unknown]
  - Back pain [Unknown]
  - Confusional state [Unknown]
  - Hyperprolinaemia [Unknown]
